FAERS Safety Report 5304860-1 (Version None)
Quarter: 2007Q2

REPORT INFORMATION
  Report Type: 
  Country: None (occurrence: None)
  Receive Date: 20070423
  Receipt Date: 20070320
  Transmission Date: 20071010
  Serious: Yes (Hospitalization, Other)
  Sender: FDA-Public Use
  Company Number: US-PFIZER INC-2007022737

PATIENT
  Sex: Female
  Weight: 63.5 kg

DRUGS (1)
  1. CELEBREX [Suspect]
     Indication: VASCULITIS

REACTIONS (4)
  - CARDIOVASCULAR DISORDER [None]
  - DEEP VEIN THROMBOSIS [None]
  - INTERMITTENT CLAUDICATION [None]
  - THROMBOSIS [None]
